FAERS Safety Report 10032803 (Version 2)
Quarter: 2014Q1

REPORT INFORMATION
  Report Type: Spontaneous
  Country: US (occurrence: US)
  Receive Date: 20140324
  Receipt Date: 20140324
  Transmission Date: 20141002
  Serious: Yes (Other)
  Sender: FDA-Public Use
  Company Number: US-SANOFI-AVENTIS-2012SA066461

PATIENT
  Sex: Female

DRUGS (1)
  1. PLAVIX [Suspect]
     Indication: PRODUCT USED FOR UNKNOWN INDICATION
     Route: 048
     Dates: start: 200412, end: 200612

REACTIONS (2)
  - Multiple injuries [Unknown]
  - Thrombotic thrombocytopenic purpura [Unknown]
